FAERS Safety Report 6666615-5 (Version None)
Quarter: 2010Q2

REPORT INFORMATION
  Report Type: 
  Country: None (occurrence: None)
  Receive Date: 20100405
  Receipt Date: 20100325
  Transmission Date: 20101027
  Serious: Yes (Hospitalization)
  Sender: FDA-Public Use
  Company Number: US-BIOGENIDEC-2010BI002847

PATIENT
  Age: 56 Year
  Sex: Male
  Weight: 120 kg

DRUGS (1)
  1. TYSABRI [Suspect]
     Indication: MULTIPLE SCLEROSIS
     Route: 042
     Dates: start: 20061127, end: 20091217

REACTIONS (4)
  - CYTOMEGALOVIRUS INFECTION [None]
  - DIABETES MELLITUS [None]
  - HERPES ZOSTER [None]
  - MULTIPLE SCLEROSIS RELAPSE [None]
